FAERS Safety Report 11081517 (Version 1)
Quarter: 2015Q2

REPORT INFORMATION
  Report Type: Report from Study
  Country: CO (occurrence: CO)
  Receive Date: 20150501
  Receipt Date: 20150501
  Transmission Date: 20150821
  Serious: Yes (Life-Threatening)
  Sender: FDA-Public Use
  Company Number: CO-EMD SERONO-8022835

PATIENT
  Age: 13 Year
  Sex: Female
  Weight: 32 kg

DRUGS (1)
  1. SAIZEN [Suspect]
     Active Substance: SOMATROPIN
     Indication: GROWTH HORMONE DEFICIENCY

REACTIONS (8)
  - Asphyxia [Unknown]
  - Headache [Unknown]
  - Cystitis [Unknown]
  - Vomiting [Unknown]
  - Peripheral swelling [Unknown]
  - Gastrointestinal disorder [Unknown]
  - Abdominal pain upper [Unknown]
  - Bone pain [Unknown]

NARRATIVE: CASE EVENT DATE: 201503
